FAERS Safety Report 11025461 (Version 1)
Quarter: 2015Q2

REPORT INFORMATION
  Report Type: Spontaneous
  Country: GB (occurrence: None)
  Receive Date: 20150410
  Receipt Date: 20150410
  Transmission Date: 20150821
  Serious: Yes (Hospitalization)
  Sender: FDA-Public Use
  Company Number: 2015FE01075

PATIENT
  Age: 32 Year
  Sex: Female
  Weight: 80 kg

DRUGS (1)
  1. PROPESS (DINOPROSTONE) VAGINAL DELIVERY SYSTEM [Suspect]
     Active Substance: DINOPROSTONE
     Indication: INDUCED LABOUR
     Route: 067
     Dates: start: 20150113, end: 20150114

REACTIONS (5)
  - Constipation [None]
  - Urinary retention [None]
  - Caesarean section [None]
  - Prolonged labour [None]
  - Vulvovaginal swelling [None]

NARRATIVE: CASE EVENT DATE: 20150113
